FAERS Safety Report 7513721-9 (Version None)
Quarter: 2011Q2

REPORT INFORMATION
  Report Type: 
  Country: None (occurrence: None)
  Receive Date: 20110531
  Receipt Date: 20110526
  Transmission Date: 20111010
  Serious: Yes (Death, Other)
  Sender: FDA-Public Use
  Company Number: PHHY2011GB45865

PATIENT
  Age: 68 Year
  Sex: Female

DRUGS (6)
  1. CODEINE SULFATE [Concomitant]
  2. ACETAMINOPHEN [Concomitant]
  3. AMITRIPTYLINE HCL [Suspect]
  4. NORTRIPTYLINE HCL [Concomitant]
  5. MORPHINE [Concomitant]
  6. DIHYDROCODEINE BITARTRATE INJ [Suspect]

REACTIONS (2)
  - TOXICITY TO VARIOUS AGENTS [None]
  - HALLUCINATION [None]
